FAERS Safety Report 5298388-5 (Version None)
Quarter: 2007Q2

REPORT INFORMATION
  Report Type: 
  Country: None (occurrence: None)
  Receive Date: 20070416
  Receipt Date: 20070404
  Transmission Date: 20071010
  Serious: Yes (Other)
  Sender: FDA-Public Use
  Company Number: US-PFIZER INC-2007027824

PATIENT
  Sex: Female
  Weight: 53.1 kg

DRUGS (3)
  1. RELPAX [Suspect]
     Indication: MIGRAINE
     Dates: start: 20040401, end: 20070103
  2. NAPROXEN [Suspect]
     Indication: HEADACHE
  3. TRIVITAN [Concomitant]
     Indication: GLAUCOMA

REACTIONS (7)
  - ALANINE AMINOTRANSFERASE INCREASED [None]
  - ANTINUCLEAR ANTIBODY POSITIVE [None]
  - ASPARTATE AMINOTRANSFERASE INCREASED [None]
  - BLOOD ALKALINE PHOSPHATASE INCREASED [None]
  - DRUG INEFFECTIVE [None]
  - GRANULOMATOUS LIVER DISEASE [None]
  - SMOOTH MUSCLE ANTIBODY [None]
